FAERS Safety Report 5286991-8 (Version None)
Quarter: 2007Q1

REPORT INFORMATION
  Report Type: 
  Country: None (occurrence: None)
  Receive Date: 20070329
  Receipt Date: 20070320
  Transmission Date: 20070707
  Serious: Yes (Other)
  Sender: FDA-Public Use
  Company Number: SPV1-2007-01404

PATIENT
  Age: 40 Year
  Sex: Male

DRUGS (1)
  1. FOSRENOL [Suspect]

REACTIONS (1)
  - PANCREATITIS ACUTE [None]
